FAERS Safety Report 4411237-X (Version None)
Quarter: 2004Q2

REPORT INFORMATION
  Report Type: 
  Country: None (occurrence: None)
  Receive Date: 20040630
  Receipt Date: 20040517
  Transmission Date: 20050107
  Serious: No
  Sender: FDA-Public Use
  Company Number: 04P-163-0261073-00

PATIENT
  Age: 78 Year
  Sex: Male
  Weight: 83.9154 kg

DRUGS (6)
  1. HUMIRA [Suspect]
     Indication: RHEUMATOID ARTHRITIS
     Dosage: 40 MG, SUBCUTANEOUS
     Route: 058
     Dates: start: 20040331, end: 20040331
  2. METHOTREXATE [Concomitant]
  3. FOLIC ACID [Concomitant]
  4. AMITRIPTYLINE HCL [Concomitant]
  5. FISH OIL [Concomitant]
  6. DUONEB [Concomitant]

REACTIONS (3)
  - DIZZINESS [None]
  - HEART RATE INCREASED [None]
  - NASOPHARYNGITIS [None]
